FAERS Safety Report 22592267 (Version 1)
Quarter: 2023Q2

REPORT INFORMATION
  Report Type: Other
  Country: IT (occurrence: IT)
  Receive Date: 20230613
  Receipt Date: 20230613
  Transmission Date: 20230721
  Serious: Yes (Hospitalization, Other)
  Sender: FDA-Public Use
  Company Number: IT-DEXAPHARM-20231418

PATIENT
  Age: 60 Year
  Sex: Male

DRUGS (4)
  1. DEXAMETHASONE [Interacting]
     Active Substance: DEXAMETHASONE
     Indication: Chemotherapy
     Dosage: TWO CYCLES OF HYPER-CVAD (CYCLOPHOSPHAMIDE, VINCRISTINE, DOXORUBICIN AND DEXAMETHASONE)
  2. CYCLOPHOSPHAMIDE [Interacting]
     Active Substance: CYCLOPHOSPHAMIDE
     Indication: Chemotherapy
     Dosage: TWO CYCLES OF HYPER-CVAD (CYCLOPHOSPHAMIDE, VINCRISTINE, DOXORUBICIN AND DEXAMETHASONE)
  3. VINCRISTINE [Interacting]
     Active Substance: VINCRISTINE
     Indication: Chemotherapy
     Dosage: TWO CYCLES OF HYPER-CVAD (CYCLOPHOSPHAMIDE, VINCRISTINE, DOXORUBICIN AND DEXAMETHASONE)
  4. DOXORUBICIN [Interacting]
     Active Substance: DOXORUBICIN
     Indication: Chemotherapy
     Dosage: TWO CYCLES OF HYPER-CVAD (CYCLOPHOSPHAMIDE, VINCRISTINE, DOXORUBICIN AND DEXAMETHASONE)

REACTIONS (3)
  - Pneumonia fungal [Recovered/Resolved]
  - Febrile neutropenia [Recovered/Resolved]
  - Drug interaction [Recovered/Resolved]
